FAERS Safety Report 25346276 (Version 1)
Quarter: 2025Q2

REPORT INFORMATION
  Report Type: Spontaneous
  Country: GB (occurrence: GB)
  Receive Date: 20250522
  Receipt Date: 20250522
  Transmission Date: 20250716
  Serious: Yes (Other)
  Sender: DEXCEL
  Company Number: None

PATIENT
  Age: 71 Year
  Sex: Male

DRUGS (5)
  1. CLOPIDOGREL [Concomitant]
     Active Substance: CLOPIDOGREL BISULFATE
  2. LansoprazoleLANSOPRAZOLE (Specific Substance SUB943) [Concomitant]
  3. OMEPRAZOLE [Suspect]
     Active Substance: OMEPRAZOLE
  4. ASPIRIN [Suspect]
     Active Substance: ASPIRIN
  5. PRASUGREL [Suspect]
     Active Substance: PRASUGREL

REACTIONS (2)
  - Rectal haemorrhage [Recovered/Resolved]
  - Abdominal discomfort [Unknown]
